FAERS Safety Report 8534321-8 (Version None)
Quarter: 2012Q2

REPORT INFORMATION
  Report Type: 
  Country: None (occurrence: None)
  Receive Date: 20120412
  Receipt Date: 20090825
  Transmission Date: 20120825
  Serious: Yes (Death)
  Sender: FDA-Public Use
  Company Number: PHEH2009US09930

PATIENT
  Age: 40 Year
  Sex: Male

DRUGS (1)
  1. CLOZARIL (CLOZAPINE) UNKNOWN [Suspect]

REACTIONS (1)
  - MYOCARDIAL INFARCTION [None]
